FAERS Safety Report 8951052 (Version 1)
Quarter: 2012Q4

REPORT INFORMATION
  Report Type: Spontaneous
  Country: US (occurrence: None)
  Receive Date: 20121129
  Receipt Date: 20121129
  Transmission Date: 20130627
  Serious: Yes (Hospitalization, Other)
  Sender: FDA-Public Use
  Company Number: 20120728

PATIENT
  Age: 4 Month
  Sex: Male

DRUGS (3)
  1. METHYLENE BLUE [Suspect]
     Indication: TATTOO
  2. GENITIAN BIOLET (METHYLROSANILINIUM CHLORIDE) [Concomitant]
  3. MORPHINE [Concomitant]

REACTIONS (6)
  - Anaphylactic reaction [None]
  - Off label use [None]
  - Erythema [None]
  - Flushing [None]
  - Wheezing [None]
  - Oxygen saturation decreased [None]
